FAERS Safety Report 7834894-4 (Version None)
Quarter: 2011Q4

REPORT INFORMATION
  Report Type: 
  Country: None (occurrence: None)
  Receive Date: 20111024
  Receipt Date: 20111021
  Transmission Date: 20120403
  Serious: Yes (Hospitalization)
  Sender: FDA-Public Use
  Company Number: FR-EISAI INC-E2080-00420-CLI-FR

PATIENT
  Sex: Male
  Weight: 25 kg

DRUGS (1)
  1. INOVELON [Suspect]
     Indication: LENNOX-GASTAUT SYNDROME
     Route: 048

REACTIONS (1)
  - HAND FRACTURE [None]
